FAERS Safety Report 4848342-X (Version None)
Quarter: 2005Q4

REPORT INFORMATION
  Report Type: 
  Country: None (occurrence: None)
  Receive Date: 20051206
  Receipt Date: 20051128
  Transmission Date: 20060501
  Serious: Yes (Death)
  Sender: FDA-Public Use
  Company Number: GBWYE189729NOV05

PATIENT
  Age: 46 Year
  Sex: Female

DRUGS (2)
  1. EFFEXOR [Suspect]
     Indication: DEPRESSION
     Dosage: 75 MG 2X PER 1 DAY
     Route: 048
     Dates: start: 20041130
  2. DEPO-PROVERA [Suspect]
     Route: 030
     Dates: start: 20050915

REACTIONS (1)
  - GASTROINTESTINAL HAEMORRHAGE [None]
